FAERS Safety Report 20171571 (Version 8)
Quarter: 2022Q4

REPORT INFORMATION
  Report Type: Report from Study
  Country: AU (occurrence: AU)
  Receive Date: 20211210
  Receipt Date: 20221019
  Transmission Date: 20230113
  Serious: Yes (Hospitalization)
  Sender: FDA-Public Use
  Company Number: AU-PFIZER INC-202101698291

PATIENT
  Age: 40 Year
  Sex: Female
  Weight: 75 kg

DRUGS (11)
  1. ABROCITINIB [Suspect]
     Active Substance: ABROCITINIB
     Indication: Dermatitis atopic
     Dosage: 200 MG, DAILY
     Route: 048
     Dates: start: 20210619
  2. TRANEXAMIC ACID [Suspect]
     Active Substance: TRANEXAMIC ACID
     Indication: Polymenorrhoea
     Dosage: 1 G, DAILY
     Route: 048
     Dates: start: 20210501
  3. TRANEXAMIC ACID [Suspect]
     Active Substance: TRANEXAMIC ACID
     Indication: Iron deficiency
  4. FLUOXETINE [Suspect]
     Active Substance: FLUOXETINE HYDROCHLORIDE
     Indication: Depressed mood
     Dosage: 10 MG, DAILY
     Route: 048
     Dates: start: 20211019, end: 20211130
  5. PROGESTERONE [Suspect]
     Active Substance: PROGESTERONE
     Indication: Oral contraception
     Dosage: 1 TABLET, ONLY ORAL CONTRACEPTIVE PILL
     Route: 048
     Dates: start: 20211025
  6. SERETIDE [Concomitant]
     Active Substance: FLUTICASONE PROPIONATE\SALMETEROL XINAFOATE
     Indication: Asthma
     Dosage: [FLUTICASONE PROPIONATE 500 UG/ SALMETEROL XINAFOATE 50 UG], DAILY
     Route: 055
     Dates: start: 2018
  7. ALBUTEROL [Concomitant]
     Active Substance: ALBUTEROL
     Indication: Asthma
     Dosage: 100 UG, DAILY
     Route: 055
     Dates: start: 1989
  8. FEXOFENADINE [Concomitant]
     Active Substance: FEXOFENADINE HYDROCHLORIDE
     Indication: Chronic spontaneous urticaria
     Dosage: 180 MG, BD
     Route: 048
     Dates: start: 2019
  9. ELOCON [Concomitant]
     Active Substance: MOMETASONE FUROATE
     Indication: Dermatitis atopic
     Dosage: 0.1 %, DAILY
     Route: 061
     Dates: start: 2010
  10. TACROLIMUS [Concomitant]
     Active Substance: TACROLIMUS
     Indication: Dermatitis atopic
     Dosage: 0.1 %, DAILY
     Route: 061
     Dates: start: 20210301
  11. MUPIROCIN [Concomitant]
     Active Substance: MUPIROCIN
     Indication: Nasal disorder
     Dosage: 2 %,BD
     Route: 061

REACTIONS (1)
  - Status migrainosus [Not Recovered/Not Resolved]

NARRATIVE: CASE EVENT DATE: 20211121
